APPROVED DRUG PRODUCT: TERIFLUNOMIDE
Active Ingredient: TERIFLUNOMIDE
Strength: 7MG
Dosage Form/Route: TABLET;ORAL
Application: A209697 | Product #001
Applicant: TORRENT PHARMA INC
Approved: Apr 4, 2024 | RLD: No | RS: No | Type: DISCN